FAERS Safety Report 26026463 (Version 1)
Quarter: 2025Q4

REPORT INFORMATION
  Report Type: Spontaneous
  Country: US (occurrence: US)
  Receive Date: 20251111
  Receipt Date: 20251111
  Transmission Date: 20260117
  Serious: No
  Sender: SANOFI AVENTIS
  Company Number: US-SA-2025SA333712

PATIENT
  Age: 10 Month
  Sex: Male
  Weight: 6.8 kg

DRUGS (1)
  1. DUPIXENT [Suspect]
     Active Substance: DUPILUMAB
     Indication: Dermatitis atopic
     Dosage: 200 MG, Q4W
     Route: 058

REACTIONS (10)
  - Wheezing [Unknown]
  - Swelling face [Unknown]
  - Vomiting [Unknown]
  - Dyspnoea [Unknown]
  - Secretion discharge [Unknown]
  - Asthenia [Unknown]
  - Decreased activity [Unknown]
  - Ocular hyperaemia [Unknown]
  - Eye swelling [Unknown]
  - Device use issue [Unknown]

NARRATIVE: CASE EVENT DATE: 20250101
